FAERS Safety Report 19685199 (Version 2)
Quarter: 2021Q3

REPORT INFORMATION
  Report Type: Spontaneous
  Country: RO (occurrence: RO)
  Receive Date: 20210811
  Receipt Date: 20210828
  Transmission Date: 20211014
  Serious: Yes (Hospitalization, Other)
  Sender: FDA-Public Use
  Company Number: NVSC2021RO177290

PATIENT
  Age: 68 Year
  Sex: Male

DRUGS (9)
  1. CLOPIDOGREL [Concomitant]
     Active Substance: CLOPIDOGREL BISULFATE
     Indication: CARDIAC DISORDER
     Dosage: UNK
     Route: 065
  2. ULTIBRO [Suspect]
     Active Substance: GLYCOPYRRONIUM\INDACATEROL
     Indication: BRONCHITIS
     Dosage: UNK
     Route: 065
     Dates: start: 2019, end: 202009
  3. CLOPIDOGREL [Concomitant]
     Active Substance: CLOPIDOGREL BISULFATE
     Indication: HYPERTENSION
  4. NOLET [Concomitant]
     Indication: CARDIAC DISORDER
     Route: 065
  5. INDAPAMID [Concomitant]
     Active Substance: INDAPAMIDE
     Indication: HYPERTENSION
  6. ULTIBRO [Suspect]
     Active Substance: GLYCOPYRRONIUM\INDACATEROL
     Indication: SILICOSIS
     Dosage: UNK
     Route: 065
     Dates: start: 202107
  7. INDAPAMID [Concomitant]
     Active Substance: INDAPAMIDE
     Indication: CARDIAC DISORDER
     Route: 065
  8. PRESTARIUM [Concomitant]
     Active Substance: PERINDOPRIL
     Indication: HYPERTENSION
     Route: 065
  9. NOLET [Concomitant]
     Indication: HYPERTENSION

REACTIONS (7)
  - Myocardial infarction [Unknown]
  - Off label use [Unknown]
  - Bronchitis [Unknown]
  - Respiratory disorder [Unknown]
  - Dyspnoea [Unknown]
  - Silicosis [Unknown]
  - Cerebrovascular accident [Unknown]

NARRATIVE: CASE EVENT DATE: 202007
